FAERS Safety Report 4983806-X (Version None)
Quarter: 2006Q1

REPORT INFORMATION
  Report Type: 
  Country: None (occurrence: None)
  Receive Date: 20060301
  Receipt Date: 20051118
  Transmission Date: 20060701
  Serious: No
  Sender: FDA-Public Use
  Company Number: S05-USA-05020-01

PATIENT
  Age: 81 Year
  Sex: Male

DRUGS (8)
  1. NAMENDA [Suspect]
     Indication: DEMENTIA ALZHEIMER'S TYPE
     Dosage: 5 MG QD PO
     Route: 048
     Dates: start: 20051110
  2. RAZADYNE (GALANTAMINE) [Concomitant]
  3. LEXAPRO [Concomitant]
  4. LIPITOR [Concomitant]
  5. METFORMIN [Concomitant]
  6. POTASSIUM [Concomitant]
  7. TOPROL-XL [Concomitant]
  8. INSULIN [Concomitant]

REACTIONS (1)
  - CONFUSIONAL STATE [None]
